FAERS Safety Report 5606763-1 (Version None)
Quarter: 2008Q1

REPORT INFORMATION
  Report Type: 
  Country: None (occurrence: None)
  Receive Date: 20080129
  Receipt Date: 20080117
  Transmission Date: 20080703
  Serious: Yes (Other)
  Sender: FDA-Public Use
  Company Number: GB-RANBAXY-2008RR-12686

PATIENT

DRUGS (4)
  1. SIMVASTATIN [Suspect]
     Dosage: 20 MG, UNK
     Route: 048
     Dates: start: 20061201
  2. CLOBAZAM [Suspect]
     Dosage: 10 MG, UNK
  3. MIXTARD HUMAN 70/30 [Suspect]
     Dosage: 32 IU, UNK
  4. VALPROATE SODIUM [Suspect]
     Dosage: 200 MG, QD

REACTIONS (2)
  - CONVULSION [None]
  - DRUG INTERACTION [None]
